FAERS Safety Report 9238890 (Version 1)
Quarter: 2013Q2

REPORT INFORMATION
  Report Type: Spontaneous
  Country: FR (occurrence: FR)
  Receive Date: 20130418
  Receipt Date: 20130418
  Transmission Date: 20140414
  Serious: Yes (Other)
  Sender: FDA-Public Use
  Company Number: PHHY2013FR034921

PATIENT
  Age: 65 Year
  Sex: Male

DRUGS (9)
  1. GLIVEC [Suspect]
     Indication: CHRONIC MYELOID LEUKAEMIA
     Dosage: 400 MG, QD
     Route: 048
     Dates: start: 20110802, end: 20120202
  2. TASIGNA [Suspect]
     Indication: CHRONIC MYELOID LEUKAEMIA
     Dosage: 4 DF, QD
     Route: 048
     Dates: start: 20120209, end: 20120524
  3. TASIGNA [Suspect]
     Dosage: 2 DF, QD
     Route: 048
     Dates: start: 20120603, end: 20120611
  4. SPRYCEL [Suspect]
     Indication: CHRONIC MYELOID LEUKAEMIA
     Dosage: 100 MG, QD
     Route: 048
     Dates: start: 20120611
  5. FENOFIBRATE [Concomitant]
     Dosage: 200 MG, DAILY
  6. ATENOLOL [Concomitant]
     Dosage: 50 MG, DAILY
  7. PERINDOPRIL [Concomitant]
     Dosage: 1 DF, DAILY
  8. INDAPAMIDE [Concomitant]
     Dosage: 1 DF DAILY
  9. ZOLPIDEM [Concomitant]
     Dosage: 10 MG, DAILY

REACTIONS (1)
  - Peripheral arterial occlusive disease [Not Recovered/Not Resolved]
